FAERS Safety Report 13868368 (Version 1)
Quarter: 2017Q3

REPORT INFORMATION
  Report Type: Spontaneous
  Country: DE (occurrence: DE)
  Receive Date: 20170815
  Receipt Date: 20170815
  Transmission Date: 20171127
  Serious: Yes (Other)
  Sender: FDA-Public Use
  Company Number: DE-BIOVITRUM-2017DE0761

PATIENT
  Age: 35 Year
  Sex: Female

DRUGS (2)
  1. KINERET [Suspect]
     Active Substance: ANAKINRA
     Dosage: AT THE AGE OF 32 YEARS, THE PATIENT GOT PREGNANT FOR THE FIRST TIME AND THE ANAKINRA DOSE WAS DECREA
  2. KINERET [Suspect]
     Active Substance: ANAKINRA
     Indication: FAMILIAL MEDITERRANEAN FEVER

REACTIONS (4)
  - Caesarean section [Unknown]
  - Uterine rupture [Unknown]
  - Pyrexia [Recovered/Resolved]
  - Off label use [Recovered/Resolved]
